FAERS Safety Report 19085884 (Version 1)
Quarter: 2021Q2

REPORT INFORMATION
  Report Type: Spontaneous
  Country: US (occurrence: US)
  Receive Date: 20210402
  Receipt Date: 20210402
  Transmission Date: 20210717
  Serious: No
  Sender: FDA-Public Use
  Company Number: US-AJANTA PHARMA USA INC.-2108827

PATIENT
  Age: 66 Year
  Sex: Male
  Weight: 96.36 kg

DRUGS (6)
  1. TADALAFIL (ANDA 209654) [Suspect]
     Active Substance: TADALAFIL
     Indication: ERECTILE DYSFUNCTION
     Route: 048
     Dates: start: 20210105, end: 20210105
  2. NEURONTIN [Concomitant]
     Active Substance: GABAPENTIN
  3. SKELAXIN [Concomitant]
     Active Substance: METAXALONE
  4. DOXYCYCLINE. [Concomitant]
     Active Substance: DOXYCYCLINE
  5. KEFLEX [Concomitant]
     Active Substance: CEPHALEXIN
  6. PROBENECID. [Concomitant]
     Active Substance: PROBENECID

REACTIONS (4)
  - Pelvic pain [Recovered/Resolved]
  - Therapeutic product effect decreased [Recovered/Resolved]
  - Product taste abnormal [Unknown]
  - Product odour abnormal [Unknown]

NARRATIVE: CASE EVENT DATE: 20210105
